FAERS Safety Report 8800008 (Version 1)
Quarter: 2012Q4

REPORT INFORMATION
  Report Type: 
  Country: US (occurrence: US)
  Receive Date: 20120921
  Receipt Date: 20120921
  Transmission Date: 20130627
  Serious: No
  Sender: FDA-Public Use
  Company Number: US-B.I. PHARMACEUTICALS,INC./RIDGEFIELD-2012-BP-22740BP

PATIENT
  Age: 81 Year
  Sex: Male

DRUGS (13)
  1. SPIRIVA [Suspect]
     Indication: CHRONIC OBSTRUCTIVE PULMONARY DISEASE
     Dosage: 18 mcg
     Route: 055
     Dates: start: 2007
  2. SPIRIVA [Suspect]
     Dosage: 36 mcg
     Route: 055
     Dates: start: 20120913, end: 20120913
  3. IMDUR [Concomitant]
     Indication: CARDIAC DISORDER
     Route: 048
     Dates: start: 2007
  4. LOPRESSOR [Concomitant]
     Indication: HYPERTENSION
     Route: 048
     Dates: start: 2007
  5. COUMADIN [Concomitant]
     Route: 048
     Dates: start: 2007
  6. LASIX [Concomitant]
     Route: 048
  7. CILOSTAZOL [Concomitant]
     Indication: POOR PERIPHERAL CIRCULATION
     Route: 048
  8. LIPITOR [Concomitant]
     Indication: BLOOD CHOLESTEROL INCREASED
     Route: 048
  9. TAMSULOSIN [Concomitant]
     Indication: BENIGN PROSTATIC HYPERPLASIA
     Route: 048
  10. AVADART [Concomitant]
     Indication: BENIGN PROSTATIC HYPERPLASIA
     Route: 048
     Dates: start: 2011
  11. XOPENEX [Concomitant]
     Indication: LUNG DISORDER
     Route: 055
     Dates: start: 2007
  12. NASONEX [Concomitant]
     Indication: HYPERSENSITIVITY
     Route: 045
  13. ASPIRIN [Concomitant]
     Dosage: 81 mg
     Route: 048
     Dates: start: 2012

REACTIONS (2)
  - Overdose [Recovered/Resolved]
  - Product quality issue [Recovered/Resolved]
